FAERS Safety Report 5598695-2 (Version None)
Quarter: 2008Q1

REPORT INFORMATION
  Report Type: 
  Country: None (occurrence: None)
  Receive Date: 20080122
  Receipt Date: 20080110
  Transmission Date: 20080703
  Serious: Yes (Hospitalization)
  Sender: FDA-Public Use
  Company Number: US-KINGPHARMUSA00001-K200800034

PATIENT

DRUGS (3)
  1. ALTACE [Suspect]
     Dosage: 5 MG, SINGLE
     Route: 048
     Dates: start: 20080103, end: 20080103
  2. HYDROCHLOROTHIAZIDE [Suspect]
     Dosage: 25 MG, SINGLE
     Route: 048
     Dates: start: 20080103, end: 20080103
  3. FLUORID [Concomitant]
     Dosage: UNK, UNK
     Route: 048

REACTIONS (2)
  - NO ADVERSE EVENT [None]
  - WRONG DRUG ADMINISTERED [None]
